FAERS Safety Report 7830631-8 (Version None)
Quarter: 2011Q4

REPORT INFORMATION
  Report Type: 
  Country: None (occurrence: None)
  Receive Date: 20111021
  Receipt Date: 20111019
  Transmission Date: 20120403
  Serious: Yes (Other)
  Sender: FDA-Public Use
  Company Number: US-ABBOTT-11P-163-0864257-00

PATIENT
  Age: 61 Year
  Sex: Female

DRUGS (16)
  1. HUMIRA [Suspect]
     Indication: PSORIASIS
     Route: 058
     Dates: start: 20080101
  2. LEVOTHYROXINE SODIUM [Concomitant]
     Indication: THYROID DISORDER
  3. METFORMIN HCL [Concomitant]
     Indication: DIABETES MELLITUS
  4. TRILIPIX DR [Concomitant]
     Indication: BLOOD CHOLESTEROL INCREASED
  5. FISH OIL [Concomitant]
     Indication: VITAMIN SUPPLEMENTATION
  6. ZANTAC [Concomitant]
  7. FLEXERIL [Concomitant]
     Indication: MUSCLE SPASMS
     Dosage: AT BEDTIME
  8. ASPIRIN [Concomitant]
     Indication: PRODUCT USED FOR UNKNOWN INDICATION
  9. PROPRANOLOL [Concomitant]
     Indication: HYPERTENSION
  10. TRILIPIX DR [Concomitant]
     Indication: BLOOD CHOLESTEROL
  11. BENICAR [Concomitant]
     Indication: HYPERTENSION
     Dosage: 20-12.5MG ONCE DAILY
  12. XANAX [Concomitant]
     Indication: ANXIETY
     Dosage: 4 TIMES DAILY AS REQUIRED
  13. PLAVIX [Concomitant]
     Indication: ANTIPLATELET THERAPY
  14. ZANTAC [Concomitant]
     Indication: GASTROOESOPHAGEAL REFLUX DISEASE
  15. OXYCODONE HCL [Concomitant]
     Indication: PAIN
     Dosage: 10/325 MG 4 TIMES DAILY AS REQUIRED
  16. VITAMIN D [Concomitant]
     Indication: VITAMIN SUPPLEMENTATION

REACTIONS (3)
  - INJECTION SITE HAEMORRHAGE [None]
  - GALLBLADDER DISORDER [None]
  - INJECTION SITE NODULE [None]
